FAERS Safety Report 15202476 (Version 8)
Quarter: 2019Q4

REPORT INFORMATION
  Report Type: Spontaneous
  Country: US (occurrence: US)
  Receive Date: 20180726
  Receipt Date: 20191029
  Transmission Date: 20200122
  Serious: No
  Sender: FDA-Public Use
  Company Number: US-SA-2018SA201177

PATIENT
  Age: 78 Year
  Sex: Female

DRUGS (4)
  1. CYCLOSPORINE. [Concomitant]
     Active Substance: CYCLOSPORINE
     Dosage: 50 MG, BID
  2. DUPIXENT [Suspect]
     Active Substance: DUPILUMAB
     Indication: IDIOPATHIC URTICARIA
     Dosage: 300 MG, QOW
     Route: 058
     Dates: start: 20180710
  3. DUPIXENT [Suspect]
     Active Substance: DUPILUMAB
     Indication: DERMATITIS ATOPIC
  4. CYCLOSPORINE. [Concomitant]
     Active Substance: CYCLOSPORINE

REACTIONS (12)
  - Arthralgia [Unknown]
  - Rash pruritic [Unknown]
  - Ocular hyperaemia [Recovered/Resolved]
  - Drug ineffective [Unknown]
  - Erythema [Unknown]
  - Pruritus [Unknown]
  - Dry skin [Unknown]
  - Rash erythematous [Recovering/Resolving]
  - Dermatitis [Recovering/Resolving]
  - Eye pruritus [Recovered/Resolved]
  - Extra dose administered [Unknown]
  - Product use in unapproved indication [Unknown]

NARRATIVE: CASE EVENT DATE: 2018
